FAERS Safety Report 4571989-5 (Version None)
Quarter: 2005Q1

REPORT INFORMATION
  Report Type: 
  Country: None (occurrence: None)
  Receive Date: 20050203
  Receipt Date: 20050203
  Transmission Date: 20050727
  Serious: Yes (Other)
  Sender: FDA-Public Use
  Company Number: None

PATIENT
  Age: 15 Year
  Sex: Female
  Weight: 35.3806 kg

DRUGS (4)
  1. STRATTERA [Suspect]
     Indication: ATTENTION DEFICIT/HYPERACTIVITY DISORDER
     Dosage: 25 MG PO QD
     Route: 048
     Dates: start: 20041203, end: 20041206
  2. ADDERALL XR 10 [Concomitant]
  3. ADDERALL 10 [Concomitant]
  4. CATAPRES [Concomitant]

REACTIONS (9)
  - ABNORMAL BEHAVIOUR [None]
  - ANXIETY [None]
  - CRYING [None]
  - DISTURBANCE IN ATTENTION [None]
  - IMPAIRED WORK ABILITY [None]
  - INSOMNIA [None]
  - MOOD ALTERED [None]
  - SCHOOL REFUSAL [None]
  - SOCIAL AVOIDANT BEHAVIOUR [None]
